FAERS Safety Report 11703810 (Version 2)
Quarter: 2015Q4

REPORT INFORMATION
  Report Type: Spontaneous
  Country: US (occurrence: US)
  Receive Date: 20151106
  Receipt Date: 20151120
  Transmission Date: 20160304
  Serious: No
  Sender: FDA-Public Use
  Company Number: US-ASTRAZENECA-2015SF05088

PATIENT
  Sex: Female
  Weight: 32.2 kg

DRUGS (3)
  1. PULMICORT FLEXHALER [Suspect]
     Active Substance: BUDESONIDE
     Indication: ASTHMA
     Dosage: 90MCG, 1 PUFF TWICE A DAY
     Route: 055
  2. VENTOLIN [Concomitant]
     Active Substance: ALBUTEROL SULFATE
     Indication: ASTHMA
     Route: 055
  3. MONTELUKAST [Concomitant]
     Active Substance: MONTELUKAST SODIUM
     Indication: HYPERSENSITIVITY
     Route: 048

REACTIONS (6)
  - Cough [Unknown]
  - Intentional device misuse [Unknown]
  - Drug ineffective [Unknown]
  - Off label use [Unknown]
  - Product quality issue [Unknown]
  - Asthma [Unknown]
